FAERS Safety Report 23366687 (Version 1)
Quarter: 2024Q1

REPORT INFORMATION
  Report Type: Other
  Country: CA (occurrence: CA)
  Receive Date: 20240104
  Receipt Date: 20240104
  Transmission Date: 20240410
  Serious: Yes (Life-Threatening, Other)
  Sender: FDA-Public Use
  Company Number: CA-PIERREL S.P.A.-2023PIR00068

PATIENT
  Age: 70 Year
  Sex: Male

DRUGS (2)
  1. ARTICAINE\EPINEPHRINE [Suspect]
     Active Substance: ARTICAINE\EPINEPHRINE
     Indication: Local anaesthesia
     Dosage: UNK
  2. ARTICAINE\EPINEPHRINE [Suspect]
     Active Substance: ARTICAINE\EPINEPHRINE
     Indication: Dental operation

REACTIONS (2)
  - Oral blood blister [Recovered/Resolved]
  - Platelet count decreased [Recovered/Resolved]
